FAERS Safety Report 12272571 (Version 3)
Quarter: 2016Q2

REPORT INFORMATION
  Report Type: Spontaneous
  Country: US (occurrence: US)
  Receive Date: 20160415
  Receipt Date: 20160531
  Transmission Date: 20160815
  Serious: Yes (Hospitalization)
  Sender: FDA-Public Use
  Company Number: US-SMITH AND NEPHEW, INC-2016SMT00310

PATIENT
  Age: 66 Year
  Sex: Male

DRUGS (1)
  1. REGRANEX [Suspect]
     Active Substance: BECAPLERMIN
     Indication: DIABETIC FOOT
     Dosage: UNK, 1X/DAY
     Route: 061
     Dates: start: 201604, end: 201604

REACTIONS (3)
  - Toe amputation [Recovered/Resolved with Sequelae]
  - Wound [Unknown]
  - Application site infection [Recovered/Resolved with Sequelae]

NARRATIVE: CASE EVENT DATE: 2016
